FAERS Safety Report 6438564-9 (Version None)
Quarter: 2009Q4

REPORT INFORMATION
  Report Type: 
  Country: None (occurrence: None)
  Receive Date: 20091112
  Receipt Date: 20091023
  Transmission Date: 20100525
  Serious: No
  Sender: FDA-Public Use
  Company Number: US-ALLERGAN-0914772US

PATIENT

DRUGS (1)
  1. COMBIGAN [Suspect]
     Indication: MACULAR OEDEMA
     Route: 047

REACTIONS (1)
  - HYPERSENSITIVITY [None]
